FAERS Safety Report 5014434-8 (Version None)
Quarter: 2006Q2

REPORT INFORMATION
  Report Type: 
  Country: None (occurrence: None)
  Receive Date: 20060531
  Receipt Date: 20060519
  Transmission Date: 20061013
  Serious: Yes (Other)
  Sender: FDA-Public Use
  Company Number: PHEH2006US06664

PATIENT
  Age: 46 Year
  Sex: Female

DRUGS (1)
  1. CLOZARIL [Suspect]
     Indication: SCHIZOPHRENIA
     Dosage: UNK, UNK
     Dates: end: 20060101

REACTIONS (3)
  - NEUTROPHIL COUNT DECREASED [None]
  - RECTAL CANCER [None]
  - WHITE BLOOD CELL COUNT DECREASED [None]
